FAERS Safety Report 23817455 (Version 1)
Quarter: 2024Q2

REPORT INFORMATION
  Report Type: Spontaneous
  Country: US (occurrence: US)
  Receive Date: 20240505
  Receipt Date: 20240505
  Transmission Date: 20240715
  Serious: No
  Sender: FDA-Public Use
  Company Number: US-SA-SAC20240425000334

PATIENT
  Sex: Male
  Weight: 77.11 kg

DRUGS (2)
  1. DUPIXENT [Suspect]
     Active Substance: DUPILUMAB
     Indication: Dermatitis atopic
     Dosage: 300 MG, QOW
     Route: 058
     Dates: start: 2022
  2. ENBREL [Suspect]
     Active Substance: BENZYL ALCOHOL\ETANERCEPT

REACTIONS (2)
  - Peripheral swelling [Not Recovered/Not Resolved]
  - Gait inability [Unknown]
